FAERS Safety Report 12635340 (Version 1)
Quarter: 2016Q3

REPORT INFORMATION
  Report Type: Spontaneous
  Country: JP (occurrence: JP)
  Receive Date: 20160808
  Receipt Date: 20160808
  Transmission Date: 20161109
  Serious: No
  Sender: FDA-Public Use
  Company Number: JP-ROCHE-1326474

PATIENT
  Age: 0 Day

DRUGS (1)
  1. TAMIFLU [Suspect]
     Active Substance: OSELTAMIVIR PHOSPHATE
     Indication: ANTIVIRAL PROPHYLAXIS
     Route: 064
     Dates: start: 20110111, end: 20110120

REACTIONS (2)
  - Foetal exposure during pregnancy [Unknown]
  - Underweight [Unknown]

NARRATIVE: CASE EVENT DATE: 20111021
